FAERS Safety Report 7839877 (Version 2)
Quarter: 2013Q4

REPORT INFORMATION
  Report Type: Spontaneous
  Country: BR (occurrence: BR)
  Receive Date: 20110303
  Receipt Date: 20131223
  Transmission Date: 20140711
  Serious: Yes (Hospitalization, Other)
  Sender: FDA-Public Use
  Company Number: BR-PFIZER INC-2011021964

PATIENT
  Age: 60 Year
  Sex: Female
  Weight: 88 kg

DRUGS (12)
  1. LYRICA [Suspect]
     Indication: TENDON DISORDER
     Dosage: 75 MG, DAILY
     Route: 048
     Dates: start: 2010
  2. LYRICA [Suspect]
     Dosage: 1 CAPSULE (75 MG), 2X/DAY
     Route: 048
     Dates: start: 20101018
  3. GABAPENTIN [Suspect]
     Indication: PAIN
     Dosage: UNK
  4. TYLEX [Suspect]
     Dosage: UNK
  5. PACO [Suspect]
     Dosage: UNK
  6. ATACAND [Concomitant]
     Dosage: UNK
  7. OMEPRAZOLE [Concomitant]
     Dosage: UNK
  8. IBUPROFEN [Concomitant]
     Dosage: UNK
  9. ATACAND HCT [Concomitant]
     Indication: BLOOD PRESSURE INCREASED
     Dosage: 1 TABLET (STRENGTH: 16 PLUS 12.5, UNSPECIFIED UNIT) PER DAY
  10. MELOXICAM [Concomitant]
     Indication: TENDON DISORDER
     Dosage: UNK
  11. PARACETAMOL [Concomitant]
     Indication: PAIN
     Dosage: UNK
  12. RANITIDINE [Concomitant]
     Indication: GASTRIC DISORDER
     Dosage: 1 TABLET EVERY 12 HOURS (2X/DAY)

REACTIONS (12)
  - Off label use [Unknown]
  - Pain [Recovered/Resolved]
  - Vision blurred [Recovered/Resolved]
  - Memory impairment [Recovered/Resolved]
  - Speech disorder [Recovered/Resolved]
  - Nervousness [Recovered/Resolved]
  - Muscular weakness [Recovered/Resolved]
  - Muscle twitching [Recovered/Resolved]
  - Constipation [Recovered/Resolved]
  - Insomnia [Recovered/Resolved]
  - Hyperhidrosis [Recovered/Resolved]
  - Drug ineffective for unapproved indication [Unknown]
